FAERS Safety Report 22255163 (Version 1)
Quarter: 2023Q2

REPORT INFORMATION
  Report Type: Spontaneous
  Country: JP (occurrence: JP)
  Receive Date: 20230426
  Receipt Date: 20230426
  Transmission Date: 20230721
  Serious: Yes (Hospitalization, Other)
  Sender: FDA-Public Use
  Company Number: JP-002147023-NVSJ2023JP005997

PATIENT
  Sex: Male

DRUGS (5)
  1. VOTRIENT [Suspect]
     Active Substance: PAZOPANIB HYDROCHLORIDE
     Indication: Renal cell carcinoma
     Dosage: 800 MG
     Route: 048
     Dates: start: 20220308
  2. VOTRIENT [Suspect]
     Active Substance: PAZOPANIB HYDROCHLORIDE
     Dosage: 600 MG
     Route: 048
     Dates: start: 202207
  3. VOTRIENT [Suspect]
     Active Substance: PAZOPANIB HYDROCHLORIDE
     Dosage: 400 MG
     Route: 048
     Dates: start: 202210, end: 202211
  4. VOTRIENT [Suspect]
     Active Substance: PAZOPANIB HYDROCHLORIDE
     Dosage: 400 MG
     Route: 048
     Dates: start: 202212, end: 202301
  5. AZILSARTAN KAMEDOXOMIL [Concomitant]
     Active Substance: AZILSARTAN KAMEDOXOMIL
     Indication: Blood pressure increased
     Dosage: 20 MG
     Route: 048

REACTIONS (4)
  - Blood pressure inadequately controlled [Recovered/Resolved]
  - Concomitant disease progression [Recovered/Resolved]
  - Constipation [Recovered/Resolved]
  - Decreased appetite [Unknown]

NARRATIVE: CASE EVENT DATE: 20220701
